FAERS Safety Report 20386497 (Version 1)
Quarter: 2022Q1

REPORT INFORMATION
  Report Type: Spontaneous
  Country: US (occurrence: US)
  Receive Date: 20220127
  Receipt Date: 20220127
  Transmission Date: 20220423
  Serious: No
  Sender: FDA-Public Use
  Company Number: US-ALLERGAN-2142795US

PATIENT
  Sex: Female

DRUGS (6)
  1. BOTOX [Suspect]
     Active Substance: ONABOTULINUMTOXINA
     Indication: Migraine
     Dosage: UNK UNK, SINGLE
     Dates: start: 20211102, end: 20211102
  2. INDOMETHACIN [Concomitant]
     Active Substance: INDOMETHACIN
     Indication: Migraine
     Dosage: 3 TIMES A DAY AS NEEDED
  3. BACLOFEN [Concomitant]
     Active Substance: BACLOFEN
     Indication: Migraine
     Dosage: 3 TIMES A DAY AS NEEDED
  4. CAMBIA [Concomitant]
     Active Substance: DICLOFENAC POTASSIUM
     Indication: Migraine
     Dosage: UNK, PRN
  5. ZOFRAN [Concomitant]
     Active Substance: ONDANSETRON HYDROCHLORIDE
     Indication: Nausea
     Dosage: UNK, PRN
  6. EXCEDRIN TENSION HEADACHE [Concomitant]
     Active Substance: ACETAMINOPHEN\CAFFEINE
     Indication: Migraine
     Dosage: 2 TABLETS AS NEEDED

REACTIONS (1)
  - Drug ineffective [Unknown]
